FAERS Safety Report 8482555-3 (Version None)
Quarter: 2012Q3

REPORT INFORMATION
  Report Type: 
  Country: None (occurrence: None)
  Receive Date: 20120702
  Receipt Date: 20120625
  Transmission Date: 20120928
  Serious: Yes (Death, Other)
  Sender: FDA-Public Use
  Company Number: DK-UCBSA-057435

PATIENT
  Age: 44 Year
  Sex: Male
  Weight: 52 kg

DRUGS (3)
  1. CARBAMAZEPINE [Suspect]
     Indication: EPILEPSY
     Dosage: 200 + 400 MG
  2. CLOBAZAM [Suspect]
     Indication: EPILEPSY
  3. VIMPAT [Suspect]
     Indication: EPILEPSY
     Dates: start: 20111013

REACTIONS (2)
  - CONVULSION [None]
  - ASPHYXIA [None]
